FAERS Safety Report 4377238-5 (Version None)
Quarter: 2004Q2

REPORT INFORMATION
  Report Type: 
  Country: None (occurrence: None)
  Receive Date: 20040614
  Receipt Date: 20040614
  Transmission Date: 20050107
  Serious: Yes (Life-Threatening, Hospitalization)
  Sender: FDA-Public Use
  Company Number: None

PATIENT
  Sex: Female
  Weight: 56.6996 kg

DRUGS (1)
  1. LANTUS [Suspect]
     Indication: DIABETES MELLITUS INSULIN-DEPENDENT
     Dosage: 14 UNITS EACH EVENI SUBCUTANEOUS
     Route: 058
     Dates: start: 20020615, end: 20040612

REACTIONS (2)
  - BLOOD GLUCOSE DECREASED [None]
  - DYSGEUSIA [None]
